FAERS Safety Report 25491592 (Version 1)
Quarter: 2025Q2

REPORT INFORMATION
  Report Type: Spontaneous
  Country: US (occurrence: US)
  Receive Date: 20250629
  Receipt Date: 20250629
  Transmission Date: 20250717
  Serious: No
  Sender: BAUSCH AND LOMB
  Company Number: US-BAUSCHBL-2025BNL009470

PATIENT
  Age: 84 Year
  Sex: Male
  Weight: 81 kg

DRUGS (2)
  1. XIIDRA [Suspect]
     Active Substance: LIFITEGRAST
     Indication: Dry eye
     Route: 047
  2. SOOTHE (TETRYZOLINE HYDROCHLORIDE) [Concomitant]
     Indication: Dry eye

REACTIONS (5)
  - Eye irritation [Unknown]
  - Product use complaint [Unknown]
  - Product container issue [Unknown]
  - Product packaging quantity issue [Unknown]
  - Product complaint [Unknown]
